FAERS Safety Report 9019892 (Version 1)
Quarter: 2013Q1

REPORT INFORMATION
  Report Type: Spontaneous
  Country: MA (occurrence: MA)
  Receive Date: 20130118
  Receipt Date: 20130118
  Transmission Date: 20140127
  Serious: Yes (Hospitalization)
  Sender: FDA-Public Use
  Company Number: MA-GENZYME-CERZ-1002776

PATIENT
  Age: 4 None
  Sex: Female
  Weight: 13.5 kg

DRUGS (1)
  1. CEREZYME [Suspect]
     Indication: GAUCHER^S DISEASE
     Dosage: 1 TIME/15 DAYS (2 BOTTLES)
     Route: 042

REACTIONS (2)
  - Splenic abscess [Not Recovered/Not Resolved]
  - Fistula [Not Recovered/Not Resolved]
